FAERS Safety Report 13040711 (Version 1)
Quarter: 2016Q4

REPORT INFORMATION
  Report Type: Spontaneous
  Country: US (occurrence: US)
  Receive Date: 20161219
  Receipt Date: 20161219
  Transmission Date: 20170207
  Serious: No
  Sender: FDA-Public Use
  Company Number: US-MYLANLABS-2016M1027012

PATIENT
  Sex: Male

DRUGS (3)
  1. FENTANYL TRANSDERMAL SYSTEM [Suspect]
     Active Substance: FENTANYL
     Indication: PAIN
     Dosage: 75 ?G/ QH, CHANGE Q48H
     Route: 062
     Dates: start: 201603
  2. DOXYCYCLINE. [Suspect]
     Active Substance: DOXYCYCLINE
     Indication: LYME DISEASE
     Dosage: 1000 MG, QD,FOR 14 DAYS
     Route: 048
     Dates: start: 2016, end: 2016
  3. ASKINA DERM FILM DRESSING [Suspect]
     Active Substance: POLYURETHANE
     Dosage: 1 DF/QD, CHANGE Q48H
     Route: 062
     Dates: start: 2016

REACTIONS (1)
  - Application site rash [Recovered/Resolved]

NARRATIVE: CASE EVENT DATE: 2016
